FAERS Safety Report 11036577 (Version 2)
Quarter: 2015Q2

REPORT INFORMATION
  Report Type: Not Available
  Country: US (occurrence: US)
  Receive Date: 20150416
  Receipt Date: 20150416
  Transmission Date: 20150821
  Serious: No
  Sender: FDA-Public Use
  Company Number: US-LUPIN PHARMACEUTICALS INC.-E2B_00001913

PATIENT
  Age: 11 Year
  Sex: Female
  Weight: 40.86 kg

DRUGS (4)
  1. TRILEPTAL [Concomitant]
     Active Substance: OXCARBAZEPINE
     Indication: PRODUCT USED FOR UNKNOWN INDICATION
     Route: 065
  2. MELATONIN [Concomitant]
     Active Substance: MELATONIN
     Indication: PRODUCT USED FOR UNKNOWN INDICATION
     Route: 065
  3. IMIPRAMINE HYDROCHLORIDE TABLETS USP 10MG [Suspect]
     Active Substance: IMIPRAMINE HYDROCHLORIDE
     Indication: IRRITABILITY
  4. IMIPRAMINE HYDROCHLORIDE TABLETS USP 10MG [Suspect]
     Active Substance: IMIPRAMINE HYDROCHLORIDE
     Indication: ANXIETY
     Dates: start: 201311

REACTIONS (5)
  - Increased appetite [Not Recovered/Not Resolved]
  - Initial insomnia [Not Recovered/Not Resolved]
  - Irritability [Not Recovered/Not Resolved]
  - Frustration [Not Recovered/Not Resolved]
  - Drug ineffective [Not Recovered/Not Resolved]

NARRATIVE: CASE EVENT DATE: 201403
